FAERS Safety Report 7622575-1 (Version None)
Quarter: 2011Q3

REPORT INFORMATION
  Report Type: 
  Country: None (occurrence: None)
  Receive Date: 20110719
  Receipt Date: 20110719
  Transmission Date: 20111222
  Serious: Yes (Other)
  Sender: FDA-Public Use
  Company Number: None

PATIENT
  Age: 45 Year
  Sex: Female
  Weight: 77.1115 kg

DRUGS (1)
  1. LYRICA [Suspect]
     Indication: POST HERPETIC NEURALGIA
     Dosage: 50MG DAILY PO
     Route: 048
     Dates: start: 20110110, end: 20110712

REACTIONS (8)
  - FATIGUE [None]
  - HEADACHE [None]
  - DRUG HYPERSENSITIVITY [None]
  - TREATMENT NONCOMPLIANCE [None]
  - PAIN IN EXTREMITY [None]
  - MALAISE [None]
  - INADEQUATE ANALGESIA [None]
  - IMPAIRED WORK ABILITY [None]
